FAERS Safety Report 12727957 (Version 4)
Quarter: 2016Q3

REPORT INFORMATION
  Report Type: Spontaneous
  Country: US (occurrence: US)
  Receive Date: 20160909
  Receipt Date: 20160926
  Transmission Date: 20161109
  Serious: Yes (Death)
  Sender: FDA-Public Use
  Company Number: US-ASTELLAS-2016US032741

PATIENT
  Sex: Female

DRUGS (3)
  1. CRESEMBA [Suspect]
     Active Substance: ISAVUCONAZONIUM SULFATE
     Indication: DIFFUSE LARGE B-CELL LYMPHOMA
  2. CRESEMBA [Suspect]
     Active Substance: ISAVUCONAZONIUM SULFATE
     Indication: NEUTROPENIA
     Dosage: 372 MG (2 CAPSULES), ONCE DAILY
     Route: 065
  3. CRESEMBA [Suspect]
     Active Substance: ISAVUCONAZONIUM SULFATE
     Indication: ASPERGILLUS INFECTION

REACTIONS (2)
  - Death [Fatal]
  - Off label use [Unknown]
